FAERS Safety Report 7409735-X (Version None)
Quarter: 2011Q2

REPORT INFORMATION
  Report Type: 
  Country: None (occurrence: None)
  Receive Date: 20110407
  Receipt Date: 20110407
  Transmission Date: 20111010
  Serious: No
  Sender: FDA-Public Use
  Company Number: None

PATIENT
  Sex: Female
  Weight: 86.1834 kg

DRUGS (1)
  1. DEXAMETHASONE SODIUM PHOSPHATE [Suspect]
     Indication: NERVE COMPRESSION
     Dosage: 5 TROPICAL TREATMENTS
     Dates: start: 20110131, end: 20110214

REACTIONS (6)
  - PAIN [None]
  - DRUG INEFFECTIVE [None]
  - OEDEMA PERIPHERAL [None]
  - BURNING SENSATION [None]
  - HYPOAESTHESIA [None]
  - DISCOMFORT [None]
